FAERS Safety Report 7389661-5 (Version None)
Quarter: 2011Q2

REPORT INFORMATION
  Report Type: 
  Country: None (occurrence: None)
  Receive Date: 20110401
  Receipt Date: 20110328
  Transmission Date: 20111010
  Serious: Yes (Other)
  Sender: FDA-Public Use
  Company Number: US-PFIZER INC-US-WYE-H18182310

PATIENT
  Age: 53 Year
  Sex: Female

DRUGS (9)
  1. ZOLOFT [Suspect]
     Indication: DEPRESSION
     Dosage: LOW DOSE
     Route: 065
     Dates: start: 19990101
  2. EFFEXOR XR [Suspect]
     Indication: SUICIDAL IDEATION
     Dosage: 300 MG, 1X/DAY
     Route: 065
     Dates: end: 20101001
  3. ZOLOFT [Suspect]
     Indication: SUICIDAL IDEATION
  4. ZOLOFT [Suspect]
     Indication: ABNORMAL DREAMS
  5. EFFEXOR XR [Suspect]
     Indication: DEPRESSION
     Dosage: UNKOWN W/ DOSE INCREASES
     Route: 065
     Dates: start: 20020101
  6. EFFEXOR XR [Suspect]
     Indication: ABNORMAL DREAMS
     Dosage: 450 MG, 1X/DAY
     Route: 065
     Dates: start: 20101001
  7. AMBIEN [Suspect]
     Indication: INSOMNIA
     Route: 065
  8. XANAX [Suspect]
     Dosage: 1 MG, 4X/DAY
     Route: 065
  9. TRAZODONE [Concomitant]

REACTIONS (11)
  - HALLUCINATION [None]
  - SINUS HEADACHE [None]
  - ASTHENIA [None]
  - INSOMNIA [None]
  - PHOTOPHOBIA [None]
  - VISUAL IMPAIRMENT [None]
  - DRUG EFFECT DECREASED [None]
  - SUICIDAL IDEATION [None]
  - FEELING ABNORMAL [None]
  - DEPRESSION [None]
  - ABNORMAL DREAMS [None]
